FAERS Safety Report 9486581 (Version 2)
Quarter: 2013Q3

REPORT INFORMATION
  Report Type: Spontaneous
  Country: GB (occurrence: None)
  Receive Date: 20130823
  Receipt Date: 20130906
  Transmission Date: 20140515
  Serious: Yes (Other)
  Sender: FDA-Public Use
  Company Number: GER/UKI/13/0034104

PATIENT
  Age: 77 Year
  Sex: Female
  Weight: 93.5 kg

DRUGS (1)
  1. CETIRIZINE [Suspect]
     Indication: PRODUCT USED FOR UNKNOWN INDICATION
     Dates: start: 20130729, end: 2013

REACTIONS (2)
  - Rash maculo-papular [None]
  - Drug hypersensitivity [None]
